FAERS Safety Report 5353133-X (Version None)
Quarter: 2007Q2

REPORT INFORMATION
  Report Type: 
  Country: None (occurrence: None)
  Receive Date: 20070611
  Receipt Date: 20070530
  Transmission Date: 20071010
  Serious: Yes (Hospitalization)
  Sender: FDA-Public Use
  Company Number: BR-PFIZER INC-A013495

PATIENT
  Sex: Male

DRUGS (2)
  1. CARDURA [Suspect]
     Indication: BENIGN PROSTATIC HYPERPLASIA
     Dosage: DAILY DOSE:2MG-FREQ:DAILY
     Route: 048
  2. CARDURA [Suspect]
     Indication: VASODILATATION

REACTIONS (1)
  - PROSTATIC OPERATION [None]
